FAERS Safety Report 6557298-3 (Version None)
Quarter: 2010Q1

REPORT INFORMATION
  Report Type: 
  Country: None (occurrence: None)
  Receive Date: 20100129
  Receipt Date: 20100119
  Transmission Date: 20100710
  Serious: Yes (Hospitalization)
  Sender: FDA-Public Use
  Company Number: GB-RANBAXY-2010RR-30584

PATIENT
  Age: 66 Year

DRUGS (7)
  1. AMOXICILLIN AND CLAVULANATE POTASSIUM [Suspect]
     Indication: CAMPYLOBACTER INFECTION
     Dosage: 625 MG, UNK
     Route: 048
     Dates: start: 20041026
  2. CEFUROXIME [Suspect]
     Indication: CAMPYLOBACTER INFECTION
     Dosage: 1.5 MG, TID
     Route: 042
     Dates: start: 20041023, end: 20041026
  3. METRONIDAZOLE [Suspect]
     Indication: CAMPYLOBACTER INFECTION
     Dosage: 500 MG, TID
     Route: 042
     Dates: start: 20041023, end: 20041025
  4. BENDROFLUMETHIAZIDE [Concomitant]
     Dosage: 2.5 MG, QD
     Route: 048
  5. LOPERAMIDE [Concomitant]
     Dosage: 2 MG, PRN
     Route: 048
  6. MEBEVERINE [Concomitant]
     Dosage: 135 MG, TID
     Route: 048
  7. STEMETIL [Concomitant]
     Dosage: UNK
     Route: 048

REACTIONS (1)
  - JAUNDICE [None]
